FAERS Safety Report 9187688 (Version 1)
Quarter: 2013Q1

REPORT INFORMATION
  Report Type: Spontaneous
  Country: BR (occurrence: BR)
  Receive Date: 20130325
  Receipt Date: 20130325
  Transmission Date: 20140127
  Serious: Yes (Hospitalization, Other)
  Sender: FDA-Public Use
  Company Number: BR-PFIZER INC-2013092913

PATIENT
  Age: 62 Year
  Sex: Female

DRUGS (6)
  1. FRONTAL [Suspect]
     Indication: ANXIETY
     Dosage: 1 MG, 1X/DAY
     Route: 048
     Dates: start: 2003, end: 2012
  2. FRONTAL [Suspect]
     Dosage: UNK
  3. FRONTAL XR [Suspect]
     Indication: ANXIETY
     Dosage: 1 MG, 1X/DAY
     Route: 048
     Dates: start: 2012
  4. XALACOM [Suspect]
     Indication: GLAUCOMA
     Dosage: 2 GTT, 1X/DAY
     Route: 047
     Dates: start: 2011, end: 2012
  5. CRESTOR [Concomitant]
     Indication: BLOOD CHOLESTEROL
     Dosage: UNK
     Dates: start: 201209
  6. DIOVAN (VALSARTAN) [Concomitant]
     Indication: HYPERTENSION
     Dosage: UNK
     Dates: start: 2011

REACTIONS (6)
  - Coma [Unknown]
  - Fall [Unknown]
  - Glaucoma [Unknown]
  - Somnolence [Unknown]
  - Eye irritation [Unknown]
  - Eye disorder [Unknown]
